FAERS Safety Report 9189750 (Version 1)
Quarter: 2013Q1

REPORT INFORMATION
  Report Type: Spontaneous
  Country: GB (occurrence: None)
  Receive Date: 20130322
  Receipt Date: 20130322
  Transmission Date: 20140127
  Serious: Yes (Hospitalization, Disabling)
  Sender: FDA-Public Use
  Company Number: GER/UKI/13/0028607

PATIENT
  Age: 49 Year
  Sex: Female
  Weight: 60 kg

DRUGS (2)
  1. OMEPRAZOLE (OMEPRAZOLE) [Suspect]
     Indication: ABDOMINAL PAIN
     Dosage: 20 MG, 1 IN 1 D, ORAL
     Route: 048
     Dates: start: 20121227, end: 20130113
  2. ELLESTE-SOLO (ESTRADIOL) [Concomitant]

REACTIONS (3)
  - Abdominal pain [None]
  - Jaundice cholestatic [None]
  - Cholelithiasis [None]
